FAERS Safety Report 6258657-9 (Version None)
Quarter: 2009Q3

REPORT INFORMATION
  Report Type: 
  Country: None (occurrence: None)
  Receive Date: 20090702
  Receipt Date: 20090618
  Transmission Date: 20100115
  Serious: Yes (Other)
  Sender: FDA-Public Use
  Company Number: DSU-2009-01266

PATIENT
  Sex: Female
  Weight: 81.6475 kg

DRUGS (4)
  1. BENICAR [Suspect]
     Indication: HYPERTENSION
     Dosage: 40 MG (40 MG, QD), PER ORAL
     Route: 048
     Dates: start: 20060101, end: 20090401
  2. JANUVIA (SITAGLIPTIN) [Concomitant]
  3. LIPITOR [Concomitant]
  4. SYMLIN (PRAMLINTIDE) [Concomitant]

REACTIONS (4)
  - ANAEMIA [None]
  - BLOOD PRESSURE INCREASED [None]
  - COELIAC DISEASE [None]
  - CONSTIPATION [None]
